FAERS Safety Report 7646581-6 (Version None)
Quarter: 2011Q3

REPORT INFORMATION
  Report Type: 
  Country: None (occurrence: None)
  Receive Date: 20110729
  Receipt Date: 20110729
  Transmission Date: 20111222
  Serious: No
  Sender: FDA-Public Use
  Company Number: None

PATIENT
  Sex: Female
  Weight: 65.7716 kg

DRUGS (4)
  1. WARFARIN SODIUM [Suspect]
     Dosage: 2.5 MG BID PRN ORAL
     Route: 048
  2. FUROSEMIDE [Suspect]
     Dosage: 40MG 3 DAY PRN ORAL
     Route: 048
  3. CARVEDILOL [Suspect]
     Dosage: 25MG BID ORAL
     Route: 048
  4. LANOXIN [Suspect]
     Dosage: .125 1 DAY ORAL
     Route: 048

REACTIONS (5)
  - DIZZINESS [None]
  - NAUSEA [None]
  - VOMITING [None]
  - PALPITATIONS [None]
  - COUGH [None]
